FAERS Safety Report 13897107 (Version 4)
Quarter: 2017Q4

REPORT INFORMATION
  Report Type: Report from Study
  Country: None (occurrence: DE)
  Receive Date: 20170823
  Receipt Date: 20171027
  Transmission Date: 20180320
  Serious: Yes (Hospitalization)
  Sender: FDA-Public Use
  Company Number: DE-ABBVIE-17P-062-2073997-00

PATIENT
  Age: 48 Year
  Sex: Male
  Weight: 83 kg

DRUGS (13)
  1. PREDNISOLON [Concomitant]
     Active Substance: PREDNISOLONE
     Route: 048
     Dates: start: 20101228, end: 20110318
  2. PREDNISOLON [Concomitant]
     Active Substance: PREDNISOLONE
     Route: 048
     Dates: start: 20161125, end: 20170214
  3. PREDNISOLON [Concomitant]
     Active Substance: PREDNISOLONE
     Route: 048
     Dates: start: 20120531, end: 20130205
  4. HUMIRA [Suspect]
     Active Substance: ADALIMUMAB
     Indication: COLITIS ULCERATIVE
     Route: 058
     Dates: start: 20150122, end: 20150616
  5. PREDNISOLON [Concomitant]
     Active Substance: PREDNISOLONE
     Indication: COLITIS ULCERATIVE
     Route: 048
     Dates: start: 20100429, end: 20100630
  6. MUTAFLOR [Concomitant]
     Active Substance: ESCHERICHIA COLI
     Indication: COLITIS ULCERATIVE
     Route: 048
     Dates: start: 20120828
  7. DERMATOP [Concomitant]
     Active Substance: PREDNICARBATE
     Indication: PSORIASIS
     Route: 061
     Dates: start: 20150616
  8. MCP [Concomitant]
     Active Substance: METOCLOPRAMIDE HYDROCHLORIDE
     Indication: NAUSEA
     Route: 048
     Dates: start: 20170322
  9. VEDOLIZUMAB [Concomitant]
     Active Substance: VEDOLIZUMAB
     Indication: COLITIS ULCERATIVE
     Dosage: START: 0, AFTER THAN: WEEK 2; WEEK 4; WEEK 8 - ALL 8WEEKS
     Route: 041
     Dates: start: 20170512, end: 20170628
  10. BUDENOSOID [Concomitant]
     Indication: COLITIS ULCERATIVE
     Route: 054
     Dates: start: 20170428, end: 20170512
  11. PREDNISOLON [Concomitant]
     Active Substance: PREDNISOLONE
     Route: 048
     Dates: start: 20170511
  12. ESOMEPRAZOL [Concomitant]
     Active Substance: ESOMEPRAZOLE
     Indication: NAUSEA
     Route: 048
     Dates: start: 20170406
  13. AZITHROMYCIN ANHYDROUS. [Concomitant]
     Active Substance: AZITHROMYCIN ANHYDROUS
     Indication: BRONCHITIS
     Route: 048
     Dates: start: 20170223, end: 20170225

REACTIONS (4)
  - Night sweats [Recovered/Resolved]
  - Colitis ulcerative [Recovered/Resolved]
  - Duodenitis [Recovered/Resolved]
  - Abdominal pain [Recovered/Resolved]

NARRATIVE: CASE EVENT DATE: 20170622
